FAERS Safety Report 12225531 (Version 1)
Quarter: 2016Q1

REPORT INFORMATION
  Report Type: Spontaneous
  Country: MY (occurrence: MY)
  Receive Date: 20160331
  Receipt Date: 20160331
  Transmission Date: 20160526
  Serious: Yes (Disabling)
  Sender: FDA-Public Use
  Company Number: MY-HTU-2016MY011750

PATIENT
  Age: 45 Year
  Sex: Female

DRUGS (6)
  1. ALOXI [Suspect]
     Active Substance: PALONOSETRON HYDROCHLORIDE
     Indication: PROPHYLAXIS OF NAUSEA AND VOMITING
     Dosage: 0.25 MG, SINGLE
     Route: 042
     Dates: start: 2015
  2. PETHIDINE [Concomitant]
     Active Substance: MEPERIDINE
     Indication: PAIN
  3. CELEBREX [Concomitant]
     Active Substance: CELECOXIB
  4. ZINACEF [Concomitant]
     Active Substance: CEFUROXIME SODIUM
  5. ROPIVACAINE [Concomitant]
     Active Substance: ROPIVACAINE
     Indication: PAIN
  6. MORPHINE [Concomitant]
     Active Substance: MORPHINE
     Indication: PAIN

REACTIONS (2)
  - Hallucination [Recovered/Resolved]
  - Inappropriate schedule of drug administration [Unknown]

NARRATIVE: CASE EVENT DATE: 2015
